FAERS Safety Report 9267198 (Version 4)
Quarter: 2013Q3

REPORT INFORMATION
  Report Type: Spontaneous
  Country: DK (occurrence: DK)
  Receive Date: 20130502
  Receipt Date: 20130802
  Transmission Date: 20140515
  Serious: Yes (Hospitalization, Other)
  Sender: FDA-Public Use
  Company Number: PHHY2013DK035999

PATIENT
  Age: 60 Year
  Sex: Male

DRUGS (8)
  1. EXFORGE HCT [Suspect]
     Indication: HYPERTENSION
     Dosage: 1 DF, (160MG VAL, 10MG AMLO, 12.5MG HCT)
     Dates: start: 20130406
  2. EXFORGE HCT [Suspect]
     Dosage: 1 DF, (160MG VAL, 10MG AMLO, 12.5MG HCT), 1X/DAY IN THE MORNING
     Dates: start: 20130406
  3. METOPROLOL [Interacting]
     Dosage: 75 MG, QHS
     Dates: start: 2008
  4. METOPROLOL [Interacting]
     Dosage: 100 MG, QHS
     Dates: start: 20130406
  5. SIMVASTATIN SANDOZ [Suspect]
     Indication: BLOOD CHOLESTEROL INCREASED
     Dosage: 20 MG, QHS
  6. LOSARTAN [Interacting]
     Indication: HYPERTENSION
     Dosage: 100 MG, QD; IN MORNING
  7. OTRIVIN [Interacting]
     Indication: NASAL CONGESTION
     Dosage: UNK UKN, UNK
  8. ASPIRIN PROTECT [Concomitant]
     Dosage: UNK UKN, UNK

REACTIONS (19)
  - Epistaxis [Recovered/Resolved]
  - Hypertension [Unknown]
  - Headache [Unknown]
  - Dizziness [Unknown]
  - Visual impairment [Unknown]
  - Syncope [Unknown]
  - Disturbance in attention [Unknown]
  - Fatigue [Unknown]
  - Nausea [Unknown]
  - Palpitations [Unknown]
  - Chest pain [Unknown]
  - Discomfort [Unknown]
  - Hyperhidrosis [Unknown]
  - Depression [Unknown]
  - Pain in extremity [Unknown]
  - Myalgia [Not Recovered/Not Resolved]
  - Drug effect decreased [Unknown]
  - Drug interaction [Unknown]
  - Nasopharyngitis [Unknown]
